FAERS Safety Report 6891690-2 (Version None)
Quarter: 2010Q3

REPORT INFORMATION
  Report Type: 
  Country: None (occurrence: None)
  Receive Date: 20100731
  Receipt Date: 20071114
  Transmission Date: 20110219
  Serious: No
  Sender: FDA-Public Use
  Company Number: US-PFIZER INC-2007077598

PATIENT
  Sex: Female
  Weight: 66.4 kg

DRUGS (1)
  1. NEURONTIN [Suspect]
     Indication: NEURALGIA
     Dates: start: 20060101

REACTIONS (2)
  - MUSCLE FATIGUE [None]
  - SINUS HEADACHE [None]
